FAERS Safety Report 6966115-9 (Version None)
Quarter: 2010Q3

REPORT INFORMATION
  Report Type: 
  Country: None (occurrence: None)
  Receive Date: 20100903
  Receipt Date: 20100825
  Transmission Date: 20110219
  Serious: Yes (Other)
  Sender: FDA-Public Use
  Company Number: PHHY2009CA00448

PATIENT
  Sex: Female

DRUGS (1)
  1. SANDOSTATIN LAR [Suspect]
     Indication: METASTATIC CARCINOID TUMOUR
     Dosage: 30 MG, EVERY 4 WEEKS
     Route: 030
     Dates: start: 20051101, end: 20100113

REACTIONS (5)
  - ASCITES [None]
  - ASTHENIA [None]
  - MALIGNANT NEOPLASM PROGRESSION [None]
  - PALLIATIVE CARE [None]
  - PARACENTESIS [None]
